FAERS Safety Report 7108816-8 (Version None)
Quarter: 2010Q4

REPORT INFORMATION
  Report Type: 
  Country: None (occurrence: None)
  Receive Date: 20101117
  Receipt Date: 20101109
  Transmission Date: 20110411
  Serious: Yes (Death, Life-Threatening)
  Sender: FDA-Public Use
  Company Number: JP-AMGEN-JPNCT2010003621

PATIENT

DRUGS (19)
  1. PANITUMUMAB [Suspect]
     Indication: COLORECTAL CANCER METASTATIC
     Dosage: UNK
     Route: 041
     Dates: start: 20101018, end: 20101018
  2. OXYCONTIN [Concomitant]
     Route: 048
  3. OXINORM [Concomitant]
     Route: 048
  4. LOXONIN [Concomitant]
     Route: 048
  5. OLMETEC [Concomitant]
     Route: 048
  6. AMLODIPINE [Concomitant]
     Route: 048
  7. MUCODYNE [Concomitant]
     Route: 048
  8. ELNEOPA [Concomitant]
     Route: 042
  9. MAXIPIME [Concomitant]
     Route: 042
  10. LANSOPRAZOLE [Concomitant]
     Route: 048
  11. ADONA [Concomitant]
     Route: 042
  12. TRANEXAMIC ACID [Concomitant]
     Route: 042
  13. PANTOL [Concomitant]
     Route: 042
  14. INTRALIPID 10% [Concomitant]
     Route: 042
  15. ZOMETA [Concomitant]
     Route: 042
  16. DEPAS [Concomitant]
     Route: 048
  17. MAGMITT [Concomitant]
     Route: 048
  18. ALOSENN [Concomitant]
     Route: 048
  19. PAXIL [Concomitant]
     Route: 048

REACTIONS (2)
  - DERMATITIS [None]
  - INTERSTITIAL LUNG DISEASE [None]
